FAERS Safety Report 5449630-9 (Version None)
Quarter: 2007Q3

REPORT INFORMATION
  Report Type: 
  Country: None (occurrence: None)
  Receive Date: 20070912
  Receipt Date: 20070905
  Transmission Date: 20080115
  Serious: Yes (Other)
  Sender: FDA-Public Use
  Company Number: PHBS2007JP14692

PATIENT
  Age: 65 Year
  Sex: Female

DRUGS (6)
  1. ZOMETA [Suspect]
     Route: 042
  2. AREDIA [Suspect]
  3. ALENDRONATE SODIUM [Suspect]
  4. HYSRON [Concomitant]
  5. ARIMIDEX [Concomitant]
  6. FEMARA [Concomitant]

REACTIONS (1)
  - OSTEONECROSIS [None]
